FAERS Safety Report 9566636 (Version 2)
Quarter: 2013Q4

REPORT INFORMATION
  Report Type: Spontaneous
  Country: JP (occurrence: JP)
  Receive Date: 20130930
  Receipt Date: 20131009
  Transmission Date: 20140711
  Serious: Yes (Other)
  Sender: FDA-Public Use
  Company Number: PHHY2013JP108686

PATIENT
  Age: 74 Year
  Sex: Male

DRUGS (3)
  1. RIVASTIGMIN [Suspect]
     Dosage: 9 MG, DAILY
     Route: 062
  2. ARICEPT [Concomitant]
     Dosage: UNK UKN, UNK
  3. RIVASTIGMIN [Suspect]
     Dosage: UNK UKN, UNK
     Route: 062

REACTIONS (4)
  - Impulsive behaviour [Unknown]
  - Dysphagia [Unknown]
  - Salivary hypersecretion [Unknown]
  - Pneumonia aspiration [Unknown]
